FAERS Safety Report 4276352-2 (Version None)
Quarter: 2004Q1

REPORT INFORMATION
  Report Type: 
  Country: None (occurrence: None)
  Receive Date: 20040116
  Receipt Date: 20040107
  Transmission Date: 20041129
  Serious: Yes (Hospitalization, Disabling, Other)
  Sender: FDA-Public Use
  Company Number: 2003016890

PATIENT
  Age: 50 Year
  Sex: Male
  Weight: 115.2136 kg

DRUGS (7)
  1. LIPITOR [Suspect]
     Indication: BLOOD CHOLESTEROL INCREASED
     Dosage: 10 MG (DAILY)
     Dates: start: 20020520, end: 20020524
  2. AMLODIPINE BESYLATE [Concomitant]
  3. PREDNISONE [Concomitant]
  4. KARVEA HCT (HYDROCHLOROTHIAZIDE, IRBESARTAN) [Concomitant]
  5. HYDROCHLOROTHIAZIDE [Concomitant]
  6. VALSARTAN (VALSARTAN) [Concomitant]
  7. ACETYLSALICYLIC ACID SRT [Concomitant]

REACTIONS (54)
  - ABDOMINAL PAIN UPPER [None]
  - ACCIDENT [None]
  - ACTIVITIES OF DAILY LIVING IMPAIRED [None]
  - AFFECTIVE DISORDER [None]
  - ATRIOVENTRICULAR BLOCK SECOND DEGREE [None]
  - AZOTAEMIA [None]
  - BACK PAIN [None]
  - BLOOD CHOLESTEROL INCREASED [None]
  - DEHYDRATION [None]
  - DENTAL CARIES [None]
  - DYSPHAGIA [None]
  - DYSPNOEA EXERTIONAL [None]
  - EMOTIONAL DISORDER [None]
  - ERECTILE DYSFUNCTION [None]
  - EYE SWELLING [None]
  - FATIGUE [None]
  - FOOT DEFORMITY [None]
  - GAIT DISTURBANCE [None]
  - HEPATITIS [None]
  - HYPERTENSION [None]
  - HYPOKALAEMIA [None]
  - HYPOREFLEXIA [None]
  - INSOMNIA [None]
  - IRRITABILITY [None]
  - LOW DENSITY LIPOPROTEIN INCREASED [None]
  - MENTAL DISORDER [None]
  - MOBILITY DECREASED [None]
  - MOOD SWINGS [None]
  - MOTOR DYSFUNCTION [None]
  - MYOPATHY [None]
  - MYOSITIS [None]
  - NERVE CONDUCTION STUDIES ABNORMAL [None]
  - OEDEMA PERIPHERAL [None]
  - POLYMYOSITIS [None]
  - PROTHROMBIN TIME PROLONGED [None]
  - PULMONARY FUNCTION TEST ABNORMAL [None]
  - RASH MACULO-PAPULAR [None]
  - RED BLOOD CELL SEDIMENTATION RATE INCREASED [None]
  - RENAL DISORDER [None]
  - RENAL FAILURE [None]
  - RHABDOMYOLYSIS [None]
  - RHINITIS [None]
  - SENSATION OF HEAVINESS [None]
  - SKIN DISCOLOURATION [None]
  - SKIN HYPERPIGMENTATION [None]
  - SLEEP APNOEA SYNDROME [None]
  - SLUGGISHNESS [None]
  - SWELLING FACE [None]
  - TINEA CRURIS [None]
  - TONGUE DISORDER [None]
  - TREATMENT NONCOMPLIANCE [None]
  - WALKING AID USER [None]
  - WEIGHT DECREASED [None]
  - WEIGHT INCREASED [None]
